FAERS Safety Report 5647602-2 (Version None)
Quarter: 2008Q1

REPORT INFORMATION
  Report Type: 
  Country: None (occurrence: None)
  Receive Date: 20080131
  Receipt Date: 20071221
  Transmission Date: 20080703
  Serious: No
  Sender: FDA-Public Use
  Company Number: 163-21880-07121286

PATIENT
  Age: 80 Year
  Sex: Female

DRUGS (12)
  1. REVLIMID [Suspect]
     Indication: MYELODYSPLASTIC SYNDROME
     Dosage: 10 MG, 1 IN 1 D, ORAL
     Route: 048
     Dates: start: 20060405
  2. ADVAIR DISKUS 100/50 [Concomitant]
  3. ALLEGRA [Concomitant]
  4. LIPATOR (ATORVASTATIN) [Concomitant]
  5. NEBULIZER (OTHER ANTI-ASTHMATICS FOR SYSTEMIC USE) [Concomitant]
  6. PAXIL [Concomitant]
  7. LASIX [Concomitant]
  8. NEXIUM [Concomitant]
  9. POTASSIUM CHLORIDE [Concomitant]
  10. CALCIUM (CALCIUM) [Concomitant]
  11. INHALERS (EPINEPHRINE BITARTRATE) [Concomitant]
  12. STEROID (CORTICOSTEROID NOS) [Concomitant]

REACTIONS (4)
  - CANDIDIASIS [None]
  - GLOSSODYNIA [None]
  - OXYGEN SATURATION DECREASED [None]
  - PNEUMONIA [None]
